FAERS Safety Report 25850692 (Version 4)
Quarter: 2025Q4

REPORT INFORMATION
  Report Type: Spontaneous
  Country: US (occurrence: US)
  Receive Date: 20250926
  Receipt Date: 20251205
  Transmission Date: 20260117
  Serious: Yes (Hospitalization)
  Sender: CSL BEHRING
  Company Number: US-BEH-2025219662

PATIENT
  Sex: Male

DRUGS (3)
  1. PRIVIGEN [Suspect]
     Active Substance: HUMAN IMMUNOGLOBULIN G
     Indication: Heart-lung transplant rejection
     Dosage: 40 G, BIW
     Route: 042
     Dates: start: 202504
  2. PRIVIGEN [Suspect]
     Active Substance: HUMAN IMMUNOGLOBULIN G
     Indication: Complications of transplanted lung
     Dosage: 20 G, BIW
     Route: 042
     Dates: start: 202504
  3. PRIVIGEN [Suspect]
     Active Substance: HUMAN IMMUNOGLOBULIN G
     Dosage: 5 G, BIW
     Route: 042
     Dates: start: 202504

REACTIONS (3)
  - Hospitalisation [Unknown]
  - Lung assist device therapy [Unknown]
  - Off label use [Unknown]

NARRATIVE: CASE EVENT DATE: 20250101
